FAERS Safety Report 9852699 (Version 1)
Quarter: 2014Q1

REPORT INFORMATION
  Report Type: Spontaneous
  Country: GB (occurrence: GB)
  Receive Date: 20140129
  Receipt Date: 20140129
  Transmission Date: 20141002
  Serious: Yes (Other)
  Sender: FDA-Public Use
  Company Number: GB-TEVA-457501ISR

PATIENT
  Age: 80 Year
  Sex: Female

DRUGS (6)
  1. SERTRALINE [Suspect]
  2. PREGABALIN [Suspect]
     Indication: ANXIETY
     Dosage: 125 MILLIGRAM DAILY;
     Route: 048
     Dates: start: 20130305, end: 201309
  3. PARACETAMOL [Concomitant]
     Indication: PAIN
     Dosage: TAKEN EVERY 6 HOURS AS REQUIRED
  4. LANSOPRAZOLE [Concomitant]
  5. MIRTAZAPINE [Concomitant]
  6. LORAZEPAM [Concomitant]
     Indication: AGITATION
     Dosage: TAKEN AS REQUIRED

REACTIONS (2)
  - Dystonia [Recovering/Resolving]
  - Agitation [Unknown]
